FAERS Safety Report 7457296-1 (Version None)
Quarter: 2011Q2

REPORT INFORMATION
  Report Type: 
  Country: None (occurrence: None)
  Receive Date: 20110502
  Receipt Date: 20110502
  Transmission Date: 20111010
  Serious: Yes (Other)
  Sender: FDA-Public Use
  Company Number: None

PATIENT
  Sex: Female
  Weight: 48.0813 kg

DRUGS (1)
  1. ANASTROZOLE [Suspect]
     Indication: NEOPLASM
     Dosage: 11 TABLETS 1 X DAILY
     Dates: start: 20110210, end: 20110221

REACTIONS (2)
  - SWOLLEN TONGUE [None]
  - DYSPHAGIA [None]
